FAERS Safety Report 10781615 (Version 4)
Quarter: 2019Q2

REPORT INFORMATION
  Report Type: Spontaneous
  Country: FR (occurrence: FR)
  Receive Date: 20150210
  Receipt Date: 20190520
  Transmission Date: 20190711
  Serious: Yes (Death, Other)
  Sender: FDA-Public Use
  Company Number: FR-ELI_LILLY_AND_COMPANY-FR201502002447

PATIENT
  Age: 66 Year
  Sex: Male

DRUGS (6)
  1. CISPLATIN. [Concomitant]
     Active Substance: CISPLATIN
     Indication: LUNG ADENOCARCINOMA
     Route: 065
  2. TAXOTERE [Concomitant]
     Active Substance: DOCETAXEL
  3. CARBOPLATINE [Concomitant]
     Active Substance: CARBOPLATIN
     Indication: LUNG ADENOCARCINOMA
     Route: 065
  4. FOLIC ACID. [Concomitant]
     Active Substance: FOLIC ACID
     Indication: PREMEDICATION
  5. PEMETREXED. [Suspect]
     Active Substance: PEMETREXED
     Indication: LUNG ADENOCARCINOMA
     Dosage: 500 MG/M2, CYCLICAL
     Route: 065
  6. VITAMIN B12 [COBAMAMIDE] [Concomitant]
     Indication: PREMEDICATION

REACTIONS (4)
  - Cellulitis [Unknown]
  - Scleroderma-like reaction [Recovering/Resolving]
  - Death [Fatal]
  - Paraesthesia [Unknown]
